FAERS Safety Report 23559944 (Version 1)
Quarter: 2024Q1

REPORT INFORMATION
  Report Type: Spontaneous
  Country: US (occurrence: US)
  Receive Date: 20240223
  Receipt Date: 20240223
  Transmission Date: 20240409
  Serious: Yes (Death, Other)
  Sender: FDA-Public Use
  Company Number: US-SPECGX-T202400641

PATIENT
  Age: 30 Year
  Sex: Male

DRUGS (2)
  1. METHADONE [Suspect]
     Active Substance: METHADONE HYDROCHLORIDE
     Indication: Product used for unknown indication
     Dosage: UNK
     Route: 065
  2. HEROIN [Suspect]
     Active Substance: DIAMORPHINE
     Indication: Product used for unknown indication
     Dosage: UNK
     Route: 065

REACTIONS (15)
  - Brain death [Fatal]
  - Toxicity to various agents [Fatal]
  - Myocardial injury [Unknown]
  - Myocardial ischaemia [Unknown]
  - Resuscitation [Unknown]
  - Endotracheal intubation [Unknown]
  - Depressed level of consciousness [Unknown]
  - Coma [Unknown]
  - Respiratory depression [Unknown]
  - Electrocardiogram QT prolonged [Unknown]
  - Cardiac arrest [Unknown]
  - Anion gap abnormal [Unknown]
  - Metabolic acidosis [Unknown]
  - Bradypnoea [Unknown]
  - Hypotension [Unknown]
